FAERS Safety Report 17185364 (Version 1)
Quarter: 2019Q4

REPORT INFORMATION
  Report Type: Spontaneous
  Country: US (occurrence: US)
  Receive Date: 20191220
  Receipt Date: 20191220
  Transmission Date: 20200122
  Serious: No
  Sender: FDA-Public Use
  Company Number: US-THERAPEUTICSMD-2019TMD03446

PATIENT
  Age: 58 Year
  Sex: Female
  Weight: 64.4 kg

DRUGS (3)
  1. IMVEXXY [Suspect]
     Active Substance: ESTRADIOL
     Indication: PROPHYLAXIS URINARY TRACT INFECTION
  2. IMVEXXY [Suspect]
     Active Substance: ESTRADIOL
     Indication: VULVOVAGINAL DRYNESS
     Dosage: 10 ?G, 1 EVERY 4 DAYS BEFORE BED
     Route: 067
     Dates: start: 2018
  3. PRAMIPEXOLE. [Concomitant]
     Active Substance: PRAMIPEXOLE
     Dosage: 0.25 MG, 1X/DAY

REACTIONS (3)
  - Off label use [Not Recovered/Not Resolved]
  - Cortisol decreased [Unknown]
  - Progesterone increased [Unknown]

NARRATIVE: CASE EVENT DATE: 201809
